FAERS Safety Report 9206683 (Version 1)
Quarter: 2013Q2

REPORT INFORMATION
  Report Type: Spontaneous
  Country: US (occurrence: None)
  Receive Date: 20130401
  Receipt Date: 20130401
  Transmission Date: 20140414
  Serious: No
  Sender: FDA-Public Use
  Company Number: None

PATIENT
  Age: 33 Year
  Sex: Female
  Weight: 49.5 kg

DRUGS (1)
  1. MINOCYCLINE [Suspect]
     Indication: NEURODERMATITIS
     Route: 048
     Dates: start: 20130312, end: 20130325

REACTIONS (3)
  - Anaphylactic reaction [None]
  - Angioedema [None]
  - Anxiety [None]
